FAERS Safety Report 4818715-X (Version None)
Quarter: 2005Q4

REPORT INFORMATION
  Report Type: 
  Country: None (occurrence: None)
  Receive Date: 20051101
  Receipt Date: 20051018
  Transmission Date: 20060501
  Serious: Yes (Other)
  Sender: FDA-Public Use
  Company Number: T05-USA-03925-01

PATIENT
  Age: 16 Year
  Sex: Female
  Weight: 56.8 kg

DRUGS (2)
  1. LEXAPRO [Suspect]
     Indication: DEPRESSION
     Dosage: 10 MG QD PO
     Route: 048
     Dates: start: 20050526
  2. ALEVE [Suspect]
     Dosage: 4180 MG ONCE
     Dates: start: 20051002, end: 20051002

REACTIONS (3)
  - INTENTIONAL OVERDOSE [None]
  - PARTNER STRESS [None]
  - SUICIDE ATTEMPT [None]
